FAERS Safety Report 7279971-4 (Version None)
Quarter: 2011Q1

REPORT INFORMATION
  Report Type: 
  Country: None (occurrence: None)
  Receive Date: 20110208
  Receipt Date: 20110203
  Transmission Date: 20110831
  Serious: Yes (Death, Other)
  Sender: FDA-Public Use
  Company Number: US-PFIZER INC-2010045781

PATIENT
  Sex: Female

DRUGS (7)
  1. LEVOTHYROXINE [Concomitant]
     Indication: HYPOTHYROIDISM
     Dosage: UNK
     Dates: start: 20080112, end: 20081203
  2. CHANTIX [Suspect]
     Indication: SMOKING CESSATION THERAPY
     Dosage: STARTER PACK AND 1 MG SEVERAL TIMES A DAY
     Dates: start: 20080905, end: 20081202
  3. LORAZEPAM [Concomitant]
     Indication: ANXIETY
     Dosage: UNK
     Dates: start: 20080112, end: 20081202
  4. ATENOLOL [Concomitant]
     Indication: ANXIETY
     Dosage: UNK
     Dates: start: 20080112, end: 20081203
  5. CITALOPRAM HYDROBROMIDE [Concomitant]
     Indication: DEPRESSION
     Dosage: UNK
     Dates: start: 20080112, end: 20081203
  6. ATENOLOL [Concomitant]
     Indication: DEPRESSION
  7. OXYCODONE [Concomitant]
     Indication: BACK PAIN
     Dosage: UNK
     Dates: start: 20080116, end: 20081203

REACTIONS (5)
  - AGGRESSION [None]
  - PARANOIA [None]
  - DEPRESSION [None]
  - COMPLETED SUICIDE [None]
  - INTENTIONAL OVERDOSE [None]
